FAERS Safety Report 6337863-9 (Version None)
Quarter: 2009Q3

REPORT INFORMATION
  Report Type: 
  Country: None (occurrence: None)
  Receive Date: 20090902
  Receipt Date: 20090825
  Transmission Date: 20100115
  Serious: Yes (Hospitalization)
  Sender: FDA-Public Use
  Company Number: B0590737A

PATIENT
  Sex: Female

DRUGS (1)
  1. AUGMENTIN '125' [Suspect]
     Indication: PROPHYLAXIS
     Dosage: 1200MG PER DAY
     Route: 042
     Dates: start: 20090821, end: 20090821

REACTIONS (3)
  - DYSPNOEA [None]
  - PRESYNCOPE [None]
  - RASH [None]
